FAERS Safety Report 7050170-4 (Version None)
Quarter: 2010Q4

REPORT INFORMATION
  Report Type: 
  Country: None (occurrence: None)
  Receive Date: 20101013
  Receipt Date: 20100930
  Transmission Date: 20110411
  Serious: Yes (Hospitalization)
  Sender: FDA-Public Use
  Company Number: 011686

PATIENT
  Sex: Female
  Weight: 54.8852 kg

DRUGS (5)
  1. CIMZIA [Suspect]
     Indication: CROHN'S DISEASE
     Dosage: (SUBCUTANEOUS)
     Route: 058
     Dates: start: 20090101, end: 20100701
  2. KLONOPIN [Concomitant]
  3. ADDERALL 10 [Concomitant]
  4. PRILOSEC [Concomitant]
  5. CONTRACEPTIVES NOS [Concomitant]

REACTIONS (2)
  - ANAL FISTULA [None]
  - PERIRECTAL ABSCESS [None]
